FAERS Safety Report 9775446 (Version 1)
Quarter: 2013Q4

REPORT INFORMATION
  Report Type: Spontaneous
  Country: QA (occurrence: None)
  Receive Date: 20131218
  Receipt Date: 20131218
  Transmission Date: 20140711
  Serious: Yes (Hospitalization)
  Sender: FDA-Public Use
  Company Number: FK201305341

PATIENT
  Age: 42 Year
  Sex: Male

DRUGS (8)
  1. LEVETIRACETAM [Suspect]
     Indication: PRODUCT USED FOR UNKNOWN INDICATION
     Route: 048
  2. PHENYTOIN [Suspect]
     Indication: EPILEPSY
     Route: 048
  3. TEMOZOLOMIDE [Concomitant]
  4. DEXAMETHASONE (DEXAMETHSONE) [Concomitant]
  5. TRIMETHOPRIM/SULFAMETHOXAXOLE DS (BACTRIM) [Concomitant]
  6. ASPIRIN (ACETAYLSALICYLIC ACID) [Concomitant]
  7. ATORVASTATIN (ATORVASTATIN) [Concomitant]
  8. ENALAPRIL [Concomitant]

REACTIONS (1)
  - Toxic epidermal necrolysis [None]
